FAERS Safety Report 6427425-7 (Version None)
Quarter: 2009Q4

REPORT INFORMATION
  Report Type: 
  Country: None (occurrence: None)
  Receive Date: 20091104
  Receipt Date: 20091023
  Transmission Date: 20100525
  Serious: Yes (Life-Threatening, Hospitalization)
  Sender: FDA-Public Use
  Company Number: PFIZER INC-2007085242

PATIENT
  Age: 59 Year
  Sex: Male
  Weight: 64 kg

DRUGS (9)
  1. SUNITINIB MALATE [Suspect]
     Indication: METASTATIC RENAL CELL CARCINOMA
     Dosage: 37.5 MG, 4 WEEKS ON AND 2 WEEKS OFF
     Route: 048
     Dates: start: 20060330, end: 20070919
  2. SUNITINIB MALATE [Suspect]
     Route: 048
     Dates: end: 20071019
  3. PREDNISOLONE [Concomitant]
     Route: 048
     Dates: start: 20040206, end: 20070927
  4. TERAZOSIN HCL [Concomitant]
     Route: 048
     Dates: start: 20070111
  5. HYDROTALCITE [Concomitant]
     Route: 048
     Dates: start: 20070920, end: 20070927
  6. ENALAPRIL MALEATE [Concomitant]
     Route: 048
     Dates: start: 20070712, end: 20070927
  7. METRONIDAZOLE [Concomitant]
     Route: 048
     Dates: start: 20070921, end: 20070927
  8. VENALOT [Concomitant]
     Route: 048
     Dates: start: 20070921, end: 20070927
  9. MAGNESIUM OXIDE [Concomitant]
     Route: 048
     Dates: start: 20070921, end: 20070927

REACTIONS (2)
  - PNEUMONIA [None]
  - SEPSIS [None]
